FAERS Safety Report 5688113-8 (Version None)
Quarter: 2008Q1

REPORT INFORMATION
  Report Type: 
  Country: None (occurrence: None)
  Receive Date: 20080327
  Receipt Date: 20080318
  Transmission Date: 20080703
  Serious: Yes (Death, Other)
  Sender: FDA-Public Use
  Company Number: 18777

PATIENT
  Age: 35 Year
  Sex: Female

DRUGS (5)
  1. METHOTREXATE [Suspect]
     Indication: GLIOBLASTOMA MULTIFORME
     Dosage: 12 G/M2; OTHER
  2. PHENOBARBITAL TAB [Concomitant]
  3. DEXAMETHASONE [Concomitant]
  4. SODIUM BICARBONATE [Concomitant]
  5. DEXTROSE 5% [Concomitant]

REACTIONS (5)
  - BRAIN DEATH [None]
  - BRAIN HERNIATION [None]
  - DRUG TOXICITY [None]
  - INTRACRANIAL PRESSURE INCREASED [None]
  - NEUROTOXICITY [None]
